FAERS Safety Report 26200681 (Version 1)
Quarter: 2025Q4

REPORT INFORMATION
  Report Type: Report from Study
  Country: EU (occurrence: EU)
  Receive Date: 20251225
  Receipt Date: 20251225
  Transmission Date: 20260117
  Serious: Yes (Other)
  Sender: ABBVIE
  Company Number: EU-JNJFOC-20251227290

PATIENT
  Age: 67 Year
  Sex: Male

DRUGS (5)
  1. IMBRUVICA [Suspect]
     Active Substance: IBRUTINIB
     Indication: Mantle cell lymphoma
     Dosage: 420MG CAPSULE(S) QD (ONCE DAILY)
     Route: 048
     Dates: start: 20250113, end: 20250311
  2. IMBRUVICA [Suspect]
     Active Substance: IBRUTINIB
     Indication: Mantle cell lymphoma
     Dosage: 420MG CAPSULE(S) QD (ONCE DAILY)
     Route: 048
     Dates: start: 20250318, end: 20250425
  3. IMBRUVICA [Suspect]
     Active Substance: IBRUTINIB
     Indication: Mantle cell lymphoma
     Dosage: 420MG CAPSULE(S) QD (ONCE DAILY)
     Route: 048
     Dates: start: 20250428
  4. IMBRUVICA [Suspect]
     Active Substance: IBRUTINIB
     Indication: Mantle cell lymphoma
     Dosage: 420MG CAPSULE(S) QD (ONCE DAILY)
     Route: 048
     Dates: start: 20240906
  5. IMBRUVICA [Suspect]
     Active Substance: IBRUTINIB
     Indication: Mantle cell lymphoma
     Dosage: 560MG CAPSULE(S) QD (ONCE DAILY)
     Route: 048
     Dates: start: 20240617, end: 20240813

REACTIONS (1)
  - Ocular hypertension [Not Recovered/Not Resolved]

NARRATIVE: CASE EVENT DATE: 20250624
